FAERS Safety Report 19656332 (Version 1)
Quarter: 2021Q3

REPORT INFORMATION
  Report Type: Spontaneous
  Country: US (occurrence: US)
  Receive Date: 20210803
  Receipt Date: 20210803
  Transmission Date: 20211014
  Serious: Yes (Hospitalization)
  Sender: FDA-Public Use
  Company Number: None

PATIENT
  Age: 77 Year
  Sex: Female

DRUGS (1)
  1. COLISTIN 150MG X?GEN [Suspect]
     Active Substance: COLISTIN
     Indication: CYSTIC FIBROSIS
     Dosage: ?          OTHER ROUTE:INHALATION?
     Dates: start: 20210126

REACTIONS (3)
  - Thrombosis [None]
  - Therapy interrupted [None]
  - Cerebrovascular accident [None]

NARRATIVE: CASE EVENT DATE: 202107
